FAERS Safety Report 9149673 (Version 1)
Quarter: 2013Q1

REPORT INFORMATION
  Report Type: Spontaneous
  Country: US (occurrence: None)
  Receive Date: 20130301
  Receipt Date: 20130301
  Transmission Date: 20140127
  Serious: Yes (Other)
  Sender: FDA-Public Use
  Company Number: None

PATIENT
  Age: 35 Year
  Sex: Male
  Weight: 65.77 kg

DRUGS (1)
  1. LEVETRIACETAM [Suspect]
     Indication: CONVULSION
     Dosage: 1000MG BID PO
     Route: 048
     Dates: start: 20120818, end: 20121119

REACTIONS (3)
  - Convulsion [None]
  - Product substitution issue [None]
  - Therapeutic response unexpected with drug substitution [None]
